FAERS Safety Report 16788449 (Version 1)
Quarter: 2019Q3

REPORT INFORMATION
  Report Type: Spontaneous
  Country: RO (occurrence: RO)
  Receive Date: 20190910
  Receipt Date: 20190910
  Transmission Date: 20191005
  Serious: Yes (Death, Other)
  Sender: FDA-Public Use
  Company Number: RO-SUN PHARMACEUTICAL INDUSTRIES LTD-2019RR-220236

PATIENT
  Age: 89 Year
  Sex: Male
  Weight: 68 kg

DRUGS (3)
  1. PARACETAMOL [Suspect]
     Active Substance: ACETAMINOPHEN
     Indication: LOCOMOTIVE SYNDROME
     Dosage: 1 DF, 24D (TABLET)
     Route: 048
     Dates: start: 2010, end: 2016
  2. AUGMENTIN [Suspect]
     Active Substance: AMOXICILLIN\CLAVULANATE POTASSIUM
     Indication: LOCOMOTIVE SYNDROME
     Dosage: ()
     Route: 065
  3. AUGMENTIN [Suspect]
     Active Substance: AMOXICILLIN\CLAVULANATE POTASSIUM
     Indication: INFLAMMATION
     Dosage: 1 DF, 24D (TABLET)
     Route: 048
     Dates: start: 2010, end: 2016

REACTIONS (6)
  - Product use in unapproved indication [Unknown]
  - Fluid retention [Recovered/Resolved with Sequelae]
  - Off label use [Unknown]
  - Suffocation feeling [Recovered/Resolved with Sequelae]
  - Death [Fatal]
  - Drug ineffective [Not Recovered/Not Resolved]

NARRATIVE: CASE EVENT DATE: 2016
